FAERS Safety Report 14197698 (Version 2)
Quarter: 2017Q4

REPORT INFORMATION
  Report Type: Spontaneous
  Country: JP (occurrence: JP)
  Receive Date: 20171116
  Receipt Date: 20171122
  Transmission Date: 20180321
  Serious: Yes (Hospitalization)
  Sender: FDA-Public Use
  Company Number: JP-CIPLA LTD.-2017JP20066

PATIENT

DRUGS (7)
  1. DEXAMETHASONE. [Concomitant]
     Active Substance: DEXAMETHASONE
     Dosage: 8 MG, UNK, DAY 2-4
     Route: 048
  2. EPIRUBICIN [Suspect]
     Active Substance: EPIRUBICIN
     Indication: BREAST CANCER STAGE IV
     Dosage: 90 MG/M2, EVERY 3 WEEKS, DAY 1
     Route: 042
  3. DEXAMETHASONE. [Concomitant]
     Active Substance: DEXAMETHASONE
     Dosage: 13.2 MG, UNK, DAY 1
     Route: 042
  4. APREPITANT. [Concomitant]
     Active Substance: APREPITANT
     Dosage: 85 MG, UNK, DAY 2-3
     Route: 048
  5. PALONOSETRON. [Concomitant]
     Active Substance: PALONOSETRON HYDROCHLORIDE
     Dosage: 0.75 MG, UNK, DAY 1
     Route: 042
  6. APREPITANT. [Concomitant]
     Active Substance: APREPITANT
     Dosage: 125 MG, UNK, DAY 1
     Route: 048
  7. CYCLOPHOSPHAMIDE. [Suspect]
     Active Substance: CYCLOPHOSPHAMIDE
     Indication: BREAST CANCER STAGE IV
     Dosage: 600 MG/M2, EVERY 3 WEEKS, DAY 1
     Route: 065

REACTIONS (4)
  - Stomatitis [Unknown]
  - Aortitis [Recovered/Resolved]
  - Hepatic function abnormal [Unknown]
  - Pleural effusion [Unknown]
